FAERS Safety Report 17901195 (Version 3)
Quarter: 2020Q3

REPORT INFORMATION
  Report Type: Spontaneous
  Country: US (occurrence: US)
  Receive Date: 20200616
  Receipt Date: 20200709
  Transmission Date: 20201103
  Serious: Yes (Hospitalization, Other)
  Sender: FDA-Public Use
  Company Number: US-PFIZER INC-2020232631

PATIENT
  Age: 85 Year
  Sex: Male
  Weight: 76.2 kg

DRUGS (3)
  1. VYNDAMAX [Suspect]
     Active Substance: TAFAMIDIS
     Indication: AMYLOIDOSIS
     Dosage: 61 MG, 1X/DAY
     Route: 048
     Dates: start: 202001
  2. VANDAZOLE [Suspect]
     Active Substance: METRONIDAZOLE
     Indication: AMYLOIDOSIS
     Dosage: UNK [4?20MG]
     Dates: start: 201906
  3. VYNDAMAX [Suspect]
     Active Substance: TAFAMIDIS
     Indication: MYOCARDIAL FIBROSIS

REACTIONS (4)
  - Pleural effusion [Not Recovered/Not Resolved]
  - Dyspnoea [Not Recovered/Not Resolved]
  - Off label use [Unknown]
  - Product use in unapproved indication [Unknown]
